FAERS Safety Report 4579216-X (Version None)
Quarter: 2005Q1

REPORT INFORMATION
  Report Type: 
  Country: None (occurrence: None)
  Receive Date: 20050208
  Receipt Date: 20050208
  Transmission Date: 20050727
  Serious: Yes (Life-Threatening)
  Sender: FDA-Public Use
  Company Number: None

PATIENT
  Age: 50 Year
  Sex: Male

DRUGS (1)
  1. KIDNEY TISSUES/ORGANS [Suspect]

REACTIONS (4)
  - ANEURYSM RUPTURED [None]
  - CEREBRAL HAEMORRHAGE [None]
  - COMPLICATIONS OF TRANSPLANT SURGERY [None]
  - CREUTZFELDT-JAKOB DISEASE [None]
